FAERS Safety Report 5940381-0 (Version None)
Quarter: 2008Q4

REPORT INFORMATION
  Report Type: 
  Country: None (occurrence: None)
  Receive Date: 20081104
  Receipt Date: 20081028
  Transmission Date: 20090506
  Serious: Yes (Other)
  Sender: FDA-Public Use
  Company Number: GB-ROCHE-582301

PATIENT
  Sex: Male
  Weight: 95.3 kg

DRUGS (2)
  1. ORLISTAT [Suspect]
     Indication: OBESITY
     Route: 048
     Dates: start: 20080622
  2. ORLISTAT [Suspect]
     Route: 048

REACTIONS (2)
  - DEEP VEIN THROMBOSIS [None]
  - HYPERTENSION [None]
